FAERS Safety Report 12701716 (Version 1)
Quarter: 2016Q3

REPORT INFORMATION
  Report Type: Spontaneous
  Country: US (occurrence: None)
  Receive Date: 20160830
  Receipt Date: 20160830
  Transmission Date: 20161109
  Serious: No
  Sender: FDA-Public Use
  Company Number: None

PATIENT
  Age: 54 Year
  Sex: Female

DRUGS (18)
  1. TOPAMAX [Concomitant]
     Active Substance: TOPIRAMATE
  2. CYMBALTA [Concomitant]
     Active Substance: DULOXETINE HYDROCHLORIDE
  3. TOPIRAMATE. [Concomitant]
     Active Substance: TOPIRAMATE
  4. KEPPRA [Concomitant]
     Active Substance: LEVETIRACETAM
  5. ACYCLOVIR. [Concomitant]
     Active Substance: ACYCLOVIR
  6. ARMOUR THYRO [Concomitant]
  7. CITALOPRAM [Concomitant]
     Active Substance: CITALOPRAM HYDROBROMIDE
  8. COPAXONE [Suspect]
     Active Substance: GLATIRAMER ACETATE
     Indication: MULTIPLE SCLEROSIS
     Route: 058
     Dates: start: 20070227
  9. KLONOPIN [Concomitant]
     Active Substance: CLONAZEPAM
  10. BACLOFEN. [Concomitant]
     Active Substance: BACLOFEN
  11. LEVETIRACETA [Concomitant]
  12. AMANTADINE [Concomitant]
     Active Substance: AMANTADINE
  13. ALENDRONATE [Concomitant]
     Active Substance: ALENDRONATE SODIUM
  14. BUDEPRION XL [Concomitant]
     Active Substance: BUPROPION HYDROCHLORIDE
  15. CLONAZEPAM. [Concomitant]
     Active Substance: CLONAZEPAM
  16. VIVELLE-DOT [Concomitant]
     Active Substance: ESTRADIOL
  17. PROGESTERONE. [Concomitant]
     Active Substance: PROGESTERONE
  18. PROVIGIL [Concomitant]
     Active Substance: MODAFINIL

REACTIONS (3)
  - Vertigo [None]
  - Depressed mood [None]
  - Fatigue [None]

NARRATIVE: CASE EVENT DATE: 201608
